FAERS Safety Report 7940081-1 (Version None)
Quarter: 2011Q4

REPORT INFORMATION
  Report Type: 
  Country: None (occurrence: None)
  Receive Date: 20111125
  Receipt Date: 20111118
  Transmission Date: 20120403
  Serious: Yes (Hospitalization)
  Sender: FDA-Public Use
  Company Number: PHHO2011IL019444

PATIENT
  Sex: Male

DRUGS (8)
  1. INULIN [Concomitant]
     Dosage: 60 U, UNK
  2. METFORMIN [Concomitant]
     Indication: TYPE 2 DIABETES MELLITUS
     Dosage: 1700 MG, UNK
  3. SAXAGLIPTIN [Concomitant]
     Dosage: UNK
     Dates: start: 20110315
  4. LANTUS [Concomitant]
  5. APIDRA [Concomitant]
  6. INSULIN [Concomitant]
     Dosage: 50 IU, UNK
  7. LOPRESSOR [Suspect]
     Dosage: 200 MG, UNK
  8. ASPIRIN [Concomitant]

REACTIONS (2)
  - CHEST PAIN [None]
  - BRADYCARDIA [None]
